FAERS Safety Report 5354525-5 (Version None)
Quarter: 2007Q2

REPORT INFORMATION
  Report Type: 
  Country: None (occurrence: None)
  Receive Date: 20070608
  Receipt Date: 20070530
  Transmission Date: 20071010
  Serious: Yes (Hospitalization)
  Sender: FDA-Public Use
  Company Number: MEDI-0005818

PATIENT
  Age: 3 Month
  Sex: Female
  Weight: 3.4 kg

DRUGS (1)
  1. SYNAGIS [Suspect]
     Indication: PREMATURE BABY
     Dosage: 1 IN1 M, INTRAMUSCULAR
     Route: 030
     Dates: start: 20070503

REACTIONS (3)
  - APNOEA [None]
  - BRONCHIOLITIS [None]
  - NAUSEA [None]
